FAERS Safety Report 5792981-9 (Version None)
Quarter: 2008Q2

REPORT INFORMATION
  Report Type: 
  Country: None (occurrence: None)
  Receive Date: 20080627
  Receipt Date: 20080508
  Transmission Date: 20081010
  Serious: Yes (Other)
  Sender: FDA-Public Use
  Company Number: PHBS2008DZ04476

PATIENT
  Age: 83 Year
  Sex: Female

DRUGS (1)
  1. LESCOL [Suspect]
     Dosage: 40

REACTIONS (2)
  - ABDOMINAL PAIN UPPER [None]
  - MENTAL DISORDER [None]
